FAERS Safety Report 7434768-7 (Version None)
Quarter: 2011Q2

REPORT INFORMATION
  Report Type: 
  Country: None (occurrence: None)
  Receive Date: 20110415
  Receipt Date: 20110404
  Transmission Date: 20111010
  Serious: Yes (Hospitalization)
  Sender: FDA-Public Use
  Company Number: 029651

PATIENT
  Sex: Female
  Weight: 57 kg

DRUGS (6)
  1. LACOSAMIDE [Suspect]
     Dosage: (50 MG QD ORAL), (50 MG BID ORAL), (100 MG BID ORAL), (200 MG BID ORAL)
     Route: 048
     Dates: start: 20110222, end: 20110101
  2. LACOSAMIDE [Suspect]
     Dosage: (50 MG QD ORAL), (50 MG BID ORAL), (100 MG BID ORAL), (200 MG BID ORAL)
     Route: 048
     Dates: start: 20110315
  3. LACOSAMIDE [Suspect]
     Dosage: (50 MG QD ORAL), (50 MG BID ORAL), (100 MG BID ORAL), (200 MG BID ORAL)
     Route: 048
     Dates: start: 20110208, end: 20110208
  4. LACOSAMIDE [Suspect]
     Dosage: (50 MG QD ORAL), (50 MG BID ORAL), (100 MG BID ORAL), (200 MG BID ORAL)
     Route: 048
     Dates: start: 20110209, end: 20110201
  5. DEPAKENE [Suspect]
     Dosage: (500 MG QD ORAL)
     Route: 048
  6. KEPPRA [Suspect]
     Dosage: (1000 MG BID ORAL)
     Route: 048
     Dates: end: 20110315

REACTIONS (3)
  - STATUS EPILEPTICUS [None]
  - APHASIA [None]
  - BREAST PAIN [None]
